FAERS Safety Report 8358087-X (Version None)
Quarter: 2012Q2

REPORT INFORMATION
  Report Type: 
  Country: None (occurrence: None)
  Receive Date: 20120514
  Receipt Date: 20120430
  Transmission Date: 20120825
  Serious: Yes (Death, Hospitalization)
  Sender: FDA-Public Use
  Company Number: PHHY2012JP039927

PATIENT
  Age: 75 Year
  Sex: Male

DRUGS (4)
  1. ANTI-THYMOCYTE GLOBULIN RABBIT NOS [Concomitant]
     Dosage: 3.75 MG/KG, UNK
  2. PREDNISOLONE [Concomitant]
     Dosage: 60 MG/DAY
  3. CYCLOSPORINE [Suspect]
     Indication: BONE MARROW FAILURE
     Dosage: 200 NG/ML
  4. METHYLPREDNISOLONE [Concomitant]
     Dosage: 125 MG/DAY

REACTIONS (14)
  - HEPATIC FUNCTION ABNORMAL [None]
  - PYREXIA [None]
  - ALTERED STATE OF CONSCIOUSNESS [None]
  - MULTI-ORGAN FAILURE [None]
  - LYMPHOCYTE MORPHOLOGY ABNORMAL [None]
  - EPSTEIN-BARR VIRUS INFECTION [None]
  - CYTOMEGALOVIRUS INFECTION [None]
  - LYMPHOPENIA [None]
  - LACTIC ACIDOSIS [None]
  - RESPIRATORY FAILURE [None]
  - HEPATOMEGALY [None]
  - LYMPHADENOPATHY [None]
  - LYMPHOPROLIFERATIVE DISORDER [None]
  - ENCEPHALITIS [None]
